FAERS Safety Report 4535675-X (Version None)
Quarter: 2004Q4

REPORT INFORMATION
  Report Type: 
  Country: None (occurrence: None)
  Receive Date: 20041223
  Receipt Date: 20031111
  Transmission Date: 20050328
  Serious: No
  Sender: FDA-Public Use
  Company Number: US-GLAXOSMITHKLINE-A0439339A

PATIENT
  Sex: Female

DRUGS (5)
  1. FLONASE [Suspect]
     Indication: SEASONAL ALLERGY
     Route: 045
  2. PAXIL [Concomitant]
  3. ASPIRIN [Concomitant]
  4. TYLENOL (CAPLET) [Concomitant]
  5. SKELAXIN [Concomitant]

REACTIONS (1)
  - DERMATITIS [None]
